FAERS Safety Report 4645451-5 (Version None)
Quarter: 2005Q2

REPORT INFORMATION
  Report Type: 
  Country: None (occurrence: None)
  Receive Date: 20050425
  Receipt Date: 20050408
  Transmission Date: 20051028
  Serious: Yes (Other)
  Sender: FDA-Public Use
  Company Number: DSA_26104_2005

PATIENT
  Age: 65 Year
  Sex: Male

DRUGS (5)
  1. RENIVACE [Suspect]
     Dosage: 5 MG Q DAY PO
     Route: 048
     Dates: start: 20010101
  2. ALLEGRA [Concomitant]
  3. ASPIRIN [Concomitant]
  4. MEVALOTIN [Concomitant]
  5. NIVADIL [Concomitant]

REACTIONS (2)
  - HALLUCINATION [None]
  - HYPOTHERMIA [None]
